FAERS Safety Report 10683287 (Version 2)
Quarter: 2015Q1

REPORT INFORMATION
  Report Type: Spontaneous
  Country: CN (occurrence: CN)
  Receive Date: 20141230
  Receipt Date: 20150128
  Transmission Date: 20150720
  Serious: Yes (Other)
  Sender: FDA-Public Use
  Company Number: CN-BAYER-2014-190894

PATIENT
  Sex: Female

DRUGS (1)
  1. GLUCOBAY [Suspect]
     Active Substance: ACARBOSE
     Dosage: 150 MG, TID

REACTIONS (3)
  - Suspected counterfeit product [None]
  - Diabetes mellitus inadequate control [None]
  - Drug ineffective [None]
